FAERS Safety Report 6811310-2 (Version None)
Quarter: 2010Q2

REPORT INFORMATION
  Report Type: 
  Country: None (occurrence: None)
  Receive Date: 20100630
  Receipt Date: 20091130
  Transmission Date: 20101027
  Serious: No
  Sender: FDA-Public Use
  Company Number: US-AMGEN-KDL377840

PATIENT
  Sex: Female

DRUGS (11)
  1. PROCRIT [Suspect]
     Indication: ANAEMIA
     Dates: start: 20091101
  2. INTERFERON [Concomitant]
  3. RIBAVIRIN [Concomitant]
  4. LEVOTHYROXINE SODIUM [Concomitant]
  5. METFORMIN HCL [Concomitant]
  6. HYDROCODONE BITARTRATE + IBUPROFEN [Concomitant]
  7. PROMETHAZINE [Concomitant]
  8. FLUCONAZOLE [Concomitant]
  9. DILAUDID [Concomitant]
  10. AMBIEN [Concomitant]
  11. LANTUS [Concomitant]
     Route: 058

REACTIONS (2)
  - INJECTION SITE MASS [None]
  - INJECTION SITE PAIN [None]
